FAERS Safety Report 12268331 (Version 2)
Quarter: 2016Q2

REPORT INFORMATION
  Report Type: Spontaneous
  Country: IN (occurrence: IN)
  Receive Date: 20160414
  Receipt Date: 20160429
  Transmission Date: 20160815
  Serious: Yes (Other)
  Sender: FDA-Public Use
  Company Number: ALCN2016IN002480

PATIENT
  Age: 65 Year
  Sex: Male
  Weight: 75 kg

DRUGS (6)
  1. NEVANAC [Suspect]
     Active Substance: NEPAFENAC
     Indication: EYE INFLAMMATION
  2. VIGAMOX [Suspect]
     Active Substance: MOXIFLOXACIN HYDROCHLORIDE
     Indication: POSTOPERATIVE CARE
     Dosage: UNK UNK, QID
     Route: 047
     Dates: start: 20160229, end: 20160313
  3. NEVANAC [Suspect]
     Active Substance: NEPAFENAC
     Indication: EYE PAIN
     Dosage: UNK UNK, BID
     Route: 047
     Dates: start: 20160229, end: 20160309
  4. SYSTANE LUBRICANT [Suspect]
     Active Substance: POLYETHYLENE GLYCOL 400\PROPYLENE GLYCOL
     Dosage: UNK UNK, QH
     Route: 047
  5. SYSTANE LUBRICANT [Suspect]
     Active Substance: POLYETHYLENE GLYCOL 400\PROPYLENE GLYCOL
     Indication: POSTOPERATIVE CARE
     Dosage: UNK UNK, QID
     Route: 047
     Dates: start: 20160303
  6. PREDNISOLONE ACETATE. [Suspect]
     Active Substance: PREDNISOLONE ACETATE
     Indication: POSTOPERATIVE CARE
     Dosage: UNK
     Route: 047
     Dates: start: 20160303, end: 20160406

REACTIONS (3)
  - Ocular toxicity [Recovered/Resolved]
  - Corneal oedema [Recovered/Resolved]
  - Vision blurred [Recovered/Resolved]

NARRATIVE: CASE EVENT DATE: 20160309
